FAERS Safety Report 9173646 (Version 1)
Quarter: 2013Q1

REPORT INFORMATION
  Report Type: Report from Study
  Country: US (occurrence: US)
  Receive Date: 20130320
  Receipt Date: 20130320
  Transmission Date: 20140127
  Serious: Yes (Hospitalization)
  Sender: FDA-Public Use
  Company Number: US-JNJFOC-20130308598

PATIENT
  Age: 11 Year
  Sex: Male
  Weight: 56.6 kg

DRUGS (7)
  1. REMICADE [Suspect]
     Indication: COLITIS ULCERATIVE
     Route: 042
     Dates: start: 20130305
  2. REMICADE [Suspect]
     Indication: COLITIS ULCERATIVE
     Route: 042
     Dates: start: 20120313
  3. PREDNISONE [Concomitant]
     Route: 065
  4. 6 MERCAPTOPURINE [Concomitant]
     Route: 065
  5. ZYRTEC [Concomitant]
     Route: 065
  6. RHINOCORT [Concomitant]
     Route: 055
  7. ALBUTEROL [Concomitant]
     Route: 055

REACTIONS (1)
  - Colitis ulcerative [Recovered/Resolved]
